FAERS Safety Report 16270368 (Version 1)
Quarter: 2019Q2

REPORT INFORMATION
  Report Type: Spontaneous
  Country: US (occurrence: US)
  Receive Date: 20190329
  Receipt Date: 20190329
  Transmission Date: 20190711
  Serious: No
  Sender: FDA-Public Use
  Company Number: None

PATIENT
  Age: 73 Year
  Sex: Female
  Weight: 86.18 kg

DRUGS (1)
  1. METRONIDAZOLE 250MG TABLET 1 TAB DAILY [Suspect]
     Active Substance: METRONIDAZOLE
     Indication: COLITIS ISCHAEMIC
     Dosage: ?          QUANTITY:1 PILL;?
     Route: 048
     Dates: start: 20190220, end: 20190227

REACTIONS (4)
  - Back pain [None]
  - Arthralgia [None]
  - Musculoskeletal pain [None]
  - Muscle spasms [None]

NARRATIVE: CASE EVENT DATE: 20190222
